FAERS Safety Report 5496891-6 (Version None)
Quarter: 2007Q4

REPORT INFORMATION
  Report Type: 
  Country: None (occurrence: None)
  Receive Date: 20071025
  Receipt Date: 20070831
  Transmission Date: 20080405
  Serious: No
  Sender: FDA-Public Use
  Company Number: A0678120A

PATIENT
  Age: 40 Year
  Sex: Female

DRUGS (2)
  1. ADVAIR DISKUS 100/50 [Suspect]
     Indication: COUGH
     Route: 055
     Dates: start: 20070829, end: 20070829
  2. AMOXICILLIN [Concomitant]

REACTIONS (5)
  - CHEST PAIN [None]
  - DYSPHAGIA [None]
  - ILL-DEFINED DISORDER [None]
  - NASOPHARYNGITIS [None]
  - RHINORRHOEA [None]
